FAERS Safety Report 5876062-1 (Version None)
Quarter: 2008Q3

REPORT INFORMATION
  Report Type: 
  Country: None (occurrence: None)
  Receive Date: 20080910
  Receipt Date: 20080908
  Transmission Date: 20090109
  Serious: Yes (Other)
  Sender: FDA-Public Use
  Company Number: DE-NOVOPROD-276313

PATIENT
  Sex: Male
  Weight: 64 kg

DRUGS (3)
  1. INSULIN DETEMIR FLEXPEN [Suspect]
     Indication: INSULIN-REQUIRING TYPE 2 DIABETES MELLITUS
     Dosage: 17IU, QD
     Route: 058
     Dates: start: 20080313, end: 20080401
  2. ENALAPRIL MALEATE [Concomitant]
     Dosage: 5 MG, QD
     Route: 048
     Dates: start: 20031001
  3. SIMVASTATIN [Concomitant]
     Dosage: 40 MG, QD
     Route: 048
     Dates: start: 20070201

REACTIONS (1)
  - DYSPNOEA [None]
